FAERS Safety Report 15565165 (Version 2)
Quarter: 2019Q1

REPORT INFORMATION
  Report Type: Spontaneous
  Country: US (occurrence: US)
  Receive Date: 20181030
  Receipt Date: 20190123
  Transmission Date: 20190417
  Serious: No
  Sender: FDA-Public Use
  Company Number: US-SA-2018SA296628

PATIENT
  Age: 44 Year
  Sex: Female
  Weight: 115.65 kg

DRUGS (1)
  1. DUPIXENT [Suspect]
     Active Substance: DUPILUMAB
     Indication: DERMATITIS ATOPIC
     Dosage: 300 MG, QOW
     Route: 058
     Dates: start: 201809

REACTIONS (3)
  - Diarrhoea [Unknown]
  - Skin abrasion [Unknown]
  - Pruritus [Unknown]
